FAERS Safety Report 10197132 (Version 1)
Quarter: 2014Q2

REPORT INFORMATION
  Report Type: Report from Study
  Country: US (occurrence: US)
  Receive Date: 20140527
  Receipt Date: 20140527
  Transmission Date: 20141212
  Serious: Yes (Hospitalization)
  Sender: FDA-Public Use
  Company Number: US-ALEXION PHARMACEUTICALS INC.-A201402007

PATIENT
  Sex: 0

DRUGS (1)
  1. SOLIRIS [Suspect]
     Indication: HAEMOLYTIC URAEMIC SYNDROME
     Dosage: 900 MG, UNK
     Route: 042
     Dates: start: 20140507, end: 20140515

REACTIONS (2)
  - Unresponsive to stimuli [Recovered/Resolved]
  - Lethargy [Recovered/Resolved]
